FAERS Safety Report 7962214-3 (Version None)
Quarter: 2011Q4

REPORT INFORMATION
  Report Type: 
  Country: None (occurrence: None)
  Receive Date: 20111207
  Receipt Date: 20111128
  Transmission Date: 20120403
  Serious: Yes (Other)
  Sender: FDA-Public Use
  Company Number: PHHY2011JP102844

PATIENT
  Age: 67 Year
  Sex: Male

DRUGS (2)
  1. IMATINIB MESYLATE [Suspect]
     Indication: GASTROINTESTINAL STROMAL TUMOUR
     Dosage: 200 MG,DAILY
     Route: 048
  2. IMATINIB MESYLATE [Suspect]
     Dosage: 400 MG
     Route: 048

REACTIONS (2)
  - CYST [None]
  - DRUG ERUPTION [None]
